FAERS Safety Report 6408753-8 (Version None)
Quarter: 2009Q4

REPORT INFORMATION
  Report Type: 
  Country: None (occurrence: None)
  Receive Date: 20091021
  Receipt Date: 20091019
  Transmission Date: 20100525
  Serious: Yes (Hospitalization)
  Sender: FDA-Public Use
  Company Number: A0797326A

PATIENT
  Age: 54 Year
  Sex: Female

DRUGS (5)
  1. LAMICTAL [Suspect]
     Indication: BIPOLAR DISORDER
     Dosage: 200MCG PER DAY
     Route: 048
     Dates: start: 20070101, end: 20090501
  2. LAMOTRIGINE [Suspect]
     Indication: DRUG USE FOR UNKNOWN INDICATION
     Route: 065
  3. KLONOPIN [Concomitant]
  4. REMERON [Concomitant]
  5. THORAZINE [Concomitant]

REACTIONS (9)
  - ALOPECIA [None]
  - BRONCHITIS [None]
  - CONVULSION [None]
  - DIZZINESS [None]
  - EYELID PTOSIS [None]
  - HAIR DISORDER [None]
  - MALAISE [None]
  - MUSCLE TWITCHING [None]
  - SUICIDAL IDEATION [None]
